FAERS Safety Report 15255641 (Version 1)
Quarter: 2018Q3

REPORT INFORMATION
  Report Type: Spontaneous
  Country: US (occurrence: US)
  Receive Date: 20180718
  Receipt Date: 20180718
  Transmission Date: 20181010
  Serious: No
  Sender: FDA-Public Use
  Company Number: None

PATIENT
  Age: 17 Year
  Sex: Male

DRUGS (1)
  1. ENBREL [Suspect]
     Active Substance: ETANERCEPT
     Dates: start: 20180221, end: 20180718

REACTIONS (4)
  - Product substitution issue [None]
  - Pain [None]
  - Frustration tolerance decreased [None]
  - Condition aggravated [None]

NARRATIVE: CASE EVENT DATE: 20180718
